FAERS Safety Report 8118584-9 (Version None)
Quarter: 2012Q1

REPORT INFORMATION
  Report Type: 
  Country: None (occurrence: None)
  Receive Date: 20120207
  Receipt Date: 20120131
  Transmission Date: 20120608
  Serious: Yes (Hospitalization)
  Sender: FDA-Public Use
  Company Number: IT-BAXTER-2011BH040540

PATIENT
  Age: 50 Year
  Sex: Female

DRUGS (1)
  1. ARTISS [Suspect]
     Indication: FACE LIFT
     Route: 065
     Dates: start: 20111219

REACTIONS (1)
  - DRUG INEFFECTIVE [None]
